FAERS Safety Report 11274475 (Version 1)
Quarter: 2015Q3

REPORT INFORMATION
  Report Type: Spontaneous
  Country: US (occurrence: US)
  Receive Date: 20150715
  Receipt Date: 20150715
  Transmission Date: 20151125
  Serious: Yes (Congenital Anomaly)
  Sender: FDA-Public Use
  Company Number: US-ABBVIE-15P-163-1425957-00

PATIENT

DRUGS (1)
  1. DEPAKOTE [Suspect]
     Active Substance: DIVALPROEX SODIUM
     Indication: MATERNAL EXPOSURE TIMING UNSPECIFIED
     Route: 064

REACTIONS (14)
  - Emotional distress [Unknown]
  - Congenital neurological disorder [Unknown]
  - Anhedonia [Unknown]
  - Abnormal behaviour [Unknown]
  - Learning disorder [Unknown]
  - Mental impairment [Unknown]
  - Economic problem [Unknown]
  - Injury [Unknown]
  - Motor developmental delay [Unknown]
  - Foetal exposure during pregnancy [Unknown]
  - Pain [Unknown]
  - Arnold-Chiari malformation [Unknown]
  - Autism spectrum disorder [Unknown]
  - Cognitive disorder [Unknown]
